FAERS Safety Report 8567589-2 (Version None)
Quarter: 2012Q3

REPORT INFORMATION
  Report Type: 
  Country: None (occurrence: None)
  Receive Date: 20120803
  Receipt Date: 20120731
  Transmission Date: 20120928
  Serious: Yes (Hospitalization)
  Sender: FDA-Public Use
  Company Number: NL-ROCHE-1089285

PATIENT
  Sex: Male
  Weight: 60 kg

DRUGS (6)
  1. MABTHERA [Suspect]
     Route: 042
     Dates: start: 20120201, end: 20120522
  2. MABTHERA [Suspect]
     Indication: RHEUMATOID ARTHRITIS
     Route: 042
     Dates: start: 20091012, end: 20120522
  3. MABTHERA [Suspect]
     Route: 042
     Dates: start: 20101104
  4. MABTHERA [Suspect]
     Route: 042
     Dates: start: 20101118
  5. METHOTREXATE [Suspect]
     Indication: RHEUMATOID ARTHRITIS
     Route: 048
     Dates: start: 20011101, end: 20120522
  6. PREDNISOLONE [Suspect]
     Indication: RHEUMATOID ARTHRITIS
     Dosage: 10-20 MG PER DAY
     Route: 048
     Dates: start: 20030116, end: 20120522

REACTIONS (1)
  - PROGRESSIVE MULTIFOCAL LEUKOENCEPHALOPATHY [None]
